FAERS Safety Report 25852804 (Version 1)
Quarter: 2025Q3

REPORT INFORMATION
  Report Type: Spontaneous
  Country: EU (occurrence: EU)
  Receive Date: 20250926
  Receipt Date: 20250926
  Transmission Date: 20251020
  Serious: Yes (Other)
  Sender: PFIZER
  Company Number: EU-PFIZER INC-PV202500112760

PATIENT
  Age: 4 Month
  Sex: Male
  Weight: 7.5 kg

DRUGS (2)
  1. CRIZOTINIB [Suspect]
     Active Substance: CRIZOTINIB
     Indication: Histiocytosis
     Dosage: 9.3 MG/KG, 2X/DAY (70 MG BID, WEIGHT: 7.5 KG)
     Route: 048
  2. CRIZOTINIB [Suspect]
     Active Substance: CRIZOTINIB
     Dosage: 7.5 MG/KG, 2X/DAY ON DAY 15 (REDUCED BY 20%)
     Route: 048

REACTIONS (4)
  - Hepatic cytolysis [Unknown]
  - Neutropenia [Unknown]
  - Drug effective for unapproved indication [Unknown]
  - Off label use [Unknown]
